FAERS Safety Report 23079022 (Version 1)
Quarter: 2023Q4

REPORT INFORMATION
  Report Type: Report from Study
  Country: PL (occurrence: PL)
  Receive Date: 20231018
  Receipt Date: 20231018
  Transmission Date: 20240109
  Serious: Yes (Hospitalization, Other)
  Sender: FDA-Public Use
  Company Number: PL-TAKEDA-2022TUS100904

PATIENT
  Age: 31 Year
  Sex: Male
  Weight: 56 kg

DRUGS (2)
  1. VEDOLIZUMAB [Suspect]
     Active Substance: VEDOLIZUMAB
     Indication: Crohn^s disease
     Dosage: 300 MILLIGRAM
     Route: 042
     Dates: start: 20210126
  2. PENTASA [Concomitant]
     Active Substance: MESALAMINE
     Indication: Prophylactic chemotherapy
     Dosage: 2000 MILLIGRAM, QD
     Route: 048

REACTIONS (3)
  - Colon neoplasm [Recovered/Resolved]
  - Vomiting [Recovered/Resolved]
  - Dyspepsia [Recovered/Resolved]

NARRATIVE: CASE EVENT DATE: 20220707
